FAERS Safety Report 12294876 (Version 2)
Quarter: 2016Q2

REPORT INFORMATION
  Report Type: Report from Study
  Country: US (occurrence: US)
  Receive Date: 20160422
  Receipt Date: 20160527
  Transmission Date: 20160815
  Serious: Yes (Death)
  Sender: FDA-Public Use
  Company Number: PHEH2016US009908

PATIENT
  Sex: Female

DRUGS (4)
  1. TOBI [Suspect]
     Active Substance: TOBRAMYCIN
     Indication: PSEUDOMONAS INFECTION
     Dosage: 1 DF (300 MG/5 ML), BID
     Route: 055
  2. TOBI [Suspect]
     Active Substance: TOBRAMYCIN
     Indication: ALVEOLAR LUNG DISEASE
  3. TOBI [Suspect]
     Active Substance: TOBRAMYCIN
     Indication: BRONCHIECTASIS
  4. TOBI [Suspect]
     Active Substance: TOBRAMYCIN
     Indication: COUGH

REACTIONS (1)
  - Death [Fatal]
